FAERS Safety Report 21069191 (Version 1)
Quarter: 2022Q3

REPORT INFORMATION
  Report Type: Spontaneous
  Country: US (occurrence: None)
  Receive Date: 20220711
  Receipt Date: 20220711
  Transmission Date: 20221027
  Serious: Yes (Other)
  Sender: FDA-Public Use
  Company Number: None

PATIENT
  Age: 58 Year
  Sex: Female
  Weight: 164.25 kg

DRUGS (9)
  1. ENBREL [Suspect]
     Active Substance: ETANERCEPT
     Indication: Lumbar spinal stenosis
     Dosage: OTHER FREQUENCY : ONCE WEEKLY;?OTHER ROUTE : INJECTION INTO STOMACH AREA;?
     Route: 050
     Dates: start: 20220106, end: 20220623
  2. ENBREL [Suspect]
     Active Substance: ETANERCEPT
     Indication: Psoriatic arthropathy
  3. INSULIN NOS [Concomitant]
     Active Substance: INSULIN NOS
  4. OZEMPIC [Concomitant]
     Active Substance: SEMAGLUTIDE
  5. TRESIBA [Concomitant]
     Active Substance: INSULIN DEGLUDEC
  6. VENTOLIN [Concomitant]
     Active Substance: ALBUTEROL SULFATE
  7. VITAMINS [Concomitant]
     Active Substance: VITAMINS
  8. TYLENOL [Concomitant]
     Active Substance: ACETAMINOPHEN
  9. IBUPROFEN [Concomitant]
     Active Substance: IBUPROFEN

REACTIONS (3)
  - Diarrhoea [None]
  - Hypersensitivity [None]
  - Cheilitis [None]

NARRATIVE: CASE EVENT DATE: 20220623
